FAERS Safety Report 7338136-8 (Version None)
Quarter: 2011Q1

REPORT INFORMATION
  Report Type: 
  Country: None (occurrence: None)
  Receive Date: 20110308
  Receipt Date: 20110303
  Transmission Date: 20110831
  Serious: Yes (Death)
  Sender: FDA-Public Use
  Company Number: PHHY2011US14297

PATIENT
  Sex: Female

DRUGS (46)
  1. VITAMIN E [Concomitant]
     Dosage: UNK
  2. LEVOTHYROXINE SODIUM [Concomitant]
     Dosage: UNK
  3. SPIRONOLACTONE [Concomitant]
     Dosage: UNK
  4. SENNA [Concomitant]
     Dosage: UNK
  5. AMIODARONE [Concomitant]
     Indication: ATRIAL FIBRILLATION
  6. ASPIRIN [Concomitant]
     Indication: CARDIAC DISORDER
     Dosage: 162 MG DAILY
     Route: 054
     Dates: start: 20100806, end: 20110217
  7. PACERONE [Concomitant]
     Dosage: UNK
  8. LORAZEPAM [Concomitant]
  9. PREDNISONE [Concomitant]
     Dosage: UNK
  10. OXYCODONE AND ASPIRIN [Concomitant]
     Dosage: UNK
  11. SULFASALAZINE [Concomitant]
     Dosage: UNK
  12. METHENAMINE HIPPURATE [Concomitant]
  13. PRAVASTATIN SODIUM [Concomitant]
     Dosage: UNK
  14. DOCUSATE SODIUM [Concomitant]
     Dosage: UNK
  15. VOLTAREN [Concomitant]
     Dosage: UNK
  16. ENSURE PLUS [Concomitant]
     Dosage: UNK
  17. METHENAMINE MANDELATE [Concomitant]
     Dosage: UNK
  18. PROTONIX [Concomitant]
     Dosage: UNK
  19. TRIMETHOBENZAMIDE HCL [Concomitant]
     Dosage: UNK
  20. VITAMIN B-12 [Concomitant]
     Dosage: UNK
  21. ASPIRIN [Concomitant]
  22. NITROGLYCERIN [Concomitant]
     Dosage: UNK
  23. HYDROXYCHLOROQUINE SULFATE [Concomitant]
     Dosage: UNK
  24. FUROSEMIDE [Concomitant]
     Dosage: UNK
  25. NITROGLYCERIN [Concomitant]
  26. LASIX [Concomitant]
     Indication: CARDIAC DISORDER
     Dosage: 90 MG, QD
     Route: 048
     Dates: start: 20050213, end: 20110217
  27. RECLAST [Suspect]
     Indication: OSTEOPOROSIS
     Dosage: 5 MG
     Route: 042
     Dates: start: 20110216
  28. BENADRYL [Concomitant]
     Dosage: UNK
  29. LAMICTAL [Concomitant]
     Dosage: UNK
  30. FOLIC ACID [Concomitant]
     Dosage: UNK
  31. ASCORBIC ACID [Concomitant]
     Dosage: UNK
  32. LISINOPRIL [Concomitant]
  33. TEMAZEPAM [Concomitant]
     Dosage: UNK
  34. EXELON [Concomitant]
     Dosage: 1.5 MG
  35. CARVEDIL [Concomitant]
     Indication: CARDIAC DISORDER
     Dosage: 3.125 G, BID
     Route: 048
     Dates: start: 20100806, end: 20110217
  36. MEGESTROL ACETATE [Concomitant]
  37. MULTI-VITAMINS [Concomitant]
     Dosage: UNK
  38. SEROQUEL [Concomitant]
     Dosage: UNK
  39. CYTOMEL [Concomitant]
     Indication: HYPOTHYROIDISM
     Dosage: 25 GM EVERYDAY
     Route: 048
     Dates: start: 20090403, end: 20110217
  40. LAMOTRIGINE [Concomitant]
     Dosage: UNK
  41. MIRALAX [Concomitant]
  42. VITAMIN D [Concomitant]
     Dosage: UNK
  43. MIRAPEX [Concomitant]
  44. ZOLOFT [Concomitant]
     Dosage: UNK
  45. AMIODARONE [Concomitant]
     Dosage: UNK
  46. HYDROMORFON [Concomitant]
     Dosage: UNK

REACTIONS (1)
  - SUDDEN DEATH [None]
